FAERS Safety Report 15048514 (Version 1)
Quarter: 2018Q2

REPORT INFORMATION
  Report Type: Report from Study
  Country: DE (occurrence: DE)
  Receive Date: 20180622
  Receipt Date: 20180622
  Transmission Date: 20180711
  Serious: Yes (Hospitalization)
  Sender: FDA-Public Use
  Company Number: DE-TEVA-2018-DE-911904

PATIENT
  Age: 60 Year
  Sex: Male
  Weight: 94 kg

DRUGS (17)
  1. ABRAXANE [Suspect]
     Active Substance: PACLITAXEL
     Indication: NON-SMALL CELL LUNG CANCER
     Dosage: 50 MG/M2 DAILY;
     Route: 041
     Dates: start: 20170502, end: 20170509
  2. GLANDOMED [Concomitant]
     Indication: PROPHYLAXIS
     Dosage: 80 ML DAILY;
     Route: 048
     Dates: start: 20170502, end: 20170708
  3. VALSARTAN. [Concomitant]
     Active Substance: VALSARTAN
     Indication: HYPERTENSION
     Dosage: 160 MILLIGRAM
     Route: 048
  4. AMPHO-MORONAL [Concomitant]
     Active Substance: AMPHOTERICIN B
     Indication: PROPHYLAXIS
     Dosage: 400 MILLIGRAM DAILY;
     Route: 048
     Dates: start: 20170502, end: 20170708
  5. DIPIDOLOR [Concomitant]
     Active Substance: PIRITRAMIDE
     Indication: PAIN
     Dosage: 7.5 MILLIGRAM DAILY;
     Route: 041
     Dates: start: 20170516, end: 20170516
  6. CARBOPLATIN. [Suspect]
     Active Substance: CARBOPLATIN
     Indication: NON-SMALL CELL LUNG CANCER
     Dosage: 575 MGXMIN/ML?4 MG*MIN/ML
     Route: 041
     Dates: start: 20170502, end: 20170502
  7. TRAMAL [Concomitant]
     Active Substance: TRAMADOL
     Indication: BACK PAIN
     Dosage: 225 MILLIGRAM DAILY;
     Route: 048
     Dates: start: 20170509, end: 20170708
  8. TARGIN [Concomitant]
     Active Substance: NALOXONE HYDROCHLORIDE\OXYCODONE HYDROCHLORIDE
     Indication: BACK PAIN
     Dosage: 4020 MILLIGRAM DAILY;
     Route: 048
     Dates: start: 201704, end: 20170509
  9. PANTOZOL [Concomitant]
     Active Substance: PANTOPRAZOLE SODIUM
     Indication: PROPHYLAXIS
     Dosage: 40 MILLIGRAM DAILY;
     Route: 048
     Dates: start: 20170424, end: 20170701
  10. FENTANYL. [Concomitant]
     Active Substance: FENTANYL
     Indication: PAIN
     Route: 062
     Dates: start: 20170516, end: 20170708
  11. SEVREDOL [Concomitant]
     Active Substance: MORPHINE
     Dosage: 10 MILLIGRAM DAILY;
     Route: 048
     Dates: start: 20170516, end: 20170516
  12. VALSARTAN. [Concomitant]
     Active Substance: VALSARTAN
     Route: 048
     Dates: end: 2017
  13. SEVREDOL [Concomitant]
     Active Substance: MORPHINE
     Indication: BACK PAIN
     Route: 048
     Dates: start: 201704
  14. AMLODIPIN [Concomitant]
     Active Substance: AMLODIPINE BESYLATE
     Indication: HYPERTENSION
     Dosage: 5 MILLIGRAM DAILY;
     Route: 048
     Dates: end: 201707
  15. MOVICOL [Suspect]
     Active Substance: POLYETHYLENE GLYCOL 3350\POTASSIUM CHLORIDE\SODIUM BICARBONATE\SODIUM CHLORIDE
     Indication: PROPHYLAXIS
     Dosage: 13.8 GRAM DAILY;
     Route: 048
     Dates: start: 201704, end: 201707
  16. RINGERSOLUTION [Concomitant]
     Indication: PROPHYLAXIS
     Dosage: DAILY DOSE: 42 ML MILLILITRE(S) EVERY HOUR
     Route: 041
     Dates: start: 20170516, end: 201706
  17. CLEXANE [Concomitant]
     Active Substance: ENOXAPARIN SODIUM
     Indication: PROPHYLAXIS
     Dosage: .4 ML DAILY;
     Route: 058
     Dates: start: 20170516, end: 201706

REACTIONS (5)
  - Blood creatinine increased [Recovered/Resolved]
  - Lung infection [Recovered/Resolved]
  - Diarrhoea [Recovered/Resolved]
  - Malaise [Not Recovered/Not Resolved]
  - Sepsis [Recovered/Resolved]

NARRATIVE: CASE EVENT DATE: 20170514
